FAERS Safety Report 4340352-4 (Version None)
Quarter: 2004Q2

REPORT INFORMATION
  Report Type: 
  Country: None (occurrence: None)
  Receive Date: 20040412
  Receipt Date: 20040326
  Transmission Date: 20050107
  Serious: Yes (Hospitalization)
  Sender: FDA-Public Use
  Company Number: DSA_24171_2004

PATIENT
  Age: 13 Year
  Sex: Male

DRUGS (5)
  1. HERBESSER [Suspect]
     Indication: HYPERTENSION
     Dosage: 1.65 MCG/KG/MIN Q DAY IV
     Route: 042
     Dates: start: 20040214
  2. HERBESSER [Suspect]
     Indication: HYPERTENSION
     Dosage: 1.1 MCG/KG/MIN Q DAY IV
     Route: 042
     Dates: end: 20040301
  3. ENTOMIN [Concomitant]
  4. TIOCTAN [Concomitant]
  5. BIOTIN [Concomitant]

REACTIONS (4)
  - BASE EXCESS NEGATIVE [None]
  - BLOOD LACTIC ACID INCREASED [None]
  - BLOOD PH DECREASED [None]
  - BLOOD UREA DECREASED [None]
